FAERS Safety Report 19686302 (Version 10)
Quarter: 2025Q4

REPORT INFORMATION
  Report Type: Spontaneous
  Country: US (occurrence: US)
  Receive Date: 20210811
  Receipt Date: 20251218
  Transmission Date: 20260117
  Serious: No
  Sender: KYOWA
  Company Number: US-KYOWAKIRIN-2021BKK013591

PATIENT

DRUGS (21)
  1. NOURIANZ [Suspect]
     Active Substance: ISTRADEFYLLINE
     Indication: Parkinson^s disease
     Dosage: 20 MG, QD
     Route: 048
     Dates: start: 20201125
  2. NOURIANZ [Suspect]
     Active Substance: ISTRADEFYLLINE
     Indication: Parkinson^s disease
     Dosage: 40 MG, QD
     Route: 048
     Dates: start: 20210428
  3. NOURIANZ [Suspect]
     Active Substance: ISTRADEFYLLINE
     Dosage: 40 MG, QD
     Route: 048
     Dates: start: 20210428
  4. GOCOVRI [Concomitant]
     Active Substance: AMANTADINE
     Indication: Product used for unknown indication
     Dosage: 137 MG
     Route: 065
  5. ASPIRIN [Concomitant]
     Active Substance: ASPIRIN
     Indication: Product used for unknown indication
     Dosage: 81 MG,EC
     Route: 065
  6. CARBIDOPA\LEVODOPA [Concomitant]
     Active Substance: CARBIDOPA\LEVODOPA
     Indication: Product used for unknown indication
     Dosage: 25-250 MG
     Route: 065
  7. CARBIDOPA\LEVODOPA [Concomitant]
     Active Substance: CARBIDOPA\LEVODOPA
     Dosage: UNK
     Route: 065
  8. FLUVOXAMINE [Concomitant]
     Active Substance: FLUVOXAMINE
     Indication: Product used for unknown indication
     Dosage: 25 MG
     Route: 065
  9. IBUPROFEN [Concomitant]
     Active Substance: IBUPROFEN
     Indication: Product used for unknown indication
     Dosage: 200 MG
     Route: 065
  10. MELATONIN [Concomitant]
     Active Substance: MELATONIN
     Indication: Product used for unknown indication
     Dosage: 1 MG
     Route: 065
  11. OMEPRAZOLE [Concomitant]
     Active Substance: OMEPRAZOLE
     Indication: Product used for unknown indication
     Dosage: 40 MG
     Route: 065
  12. ATORVASTATIN [Concomitant]
     Active Substance: ATORVASTATIN
     Indication: Product used for unknown indication
     Dosage: 20 MG
     Route: 065
  13. MIRTAZAPINE [Concomitant]
     Active Substance: MIRTAZAPINE
     Indication: Product used for unknown indication
     Dosage: 15 MG
     Route: 065
  14. NAPROXEN [Concomitant]
     Active Substance: NAPROXEN
     Indication: Product used for unknown indication
     Dosage: 250 MG
     Route: 065
  15. PREDNISONE [Concomitant]
     Active Substance: PREDNISONE
     Indication: Product used for unknown indication
     Dosage: 10 MG
     Route: 065
  16. HYDROXYCHLOROQUINE [Concomitant]
     Active Substance: HYDROXYCHLOROQUINE
     Indication: Product used for unknown indication
     Dosage: 200 MG, BID
     Route: 065
  17. HYDROXYCHLOROQUINE [Concomitant]
     Active Substance: HYDROXYCHLOROQUINE
     Dosage: 200 MG
     Route: 065
  18. FOLIC ACID [Concomitant]
     Active Substance: FOLIC ACID
     Indication: Product used for unknown indication
     Dosage: 1 MG
     Route: 065
  19. SULFASALAZINE DELAYED-RELEASE [Concomitant]
     Active Substance: SULFASALAZINE
     Indication: Product used for unknown indication
     Dosage: 500 MG
     Route: 065
  20. TRAZODONE [Concomitant]
     Active Substance: TRAZODONE HYDROCHLORIDE
     Indication: Product used for unknown indication
     Dosage: 50 MG
     Route: 065
  21. CREXONT [Concomitant]
     Active Substance: CARBIDOPA\LEVODOPA
     Indication: Product used for unknown indication
     Dosage: 35-140MG
     Route: 065

REACTIONS (9)
  - Abnormal dreams [Unknown]
  - Condition aggravated [Not Recovered/Not Resolved]
  - Fall [Unknown]
  - Depression [Unknown]
  - Dry mouth [Unknown]
  - Impulse-control disorder [Unknown]
  - Sleep disorder [Unknown]
  - Somnolence [Unknown]
  - Constipation [Unknown]
